FAERS Safety Report 8515365-9 (Version None)
Quarter: 2012Q3

REPORT INFORMATION
  Report Type: 
  Country: None (occurrence: None)
  Receive Date: 20120717
  Receipt Date: 20120703
  Transmission Date: 20120928
  Serious: Yes (Death)
  Sender: FDA-Public Use
  Company Number: MX-ELI_LILLY_AND_COMPANY-MX201207001339

PATIENT
  Age: 82 Year
  Sex: Male

DRUGS (2)
  1. MIDAZOLAM [Concomitant]
  2. ZYPREXA [Suspect]
     Indication: AGITATION
     Dosage: 5 MG, EACH EVENING
     Route: 030

REACTIONS (1)
  - CARDIO-RESPIRATORY ARREST [None]
